FAERS Safety Report 8343135-3 (Version None)
Quarter: 2012Q2

REPORT INFORMATION
  Report Type: 
  Country: None (occurrence: None)
  Receive Date: 20120508
  Receipt Date: 20120430
  Transmission Date: 20120825
  Serious: Yes (Hospitalization)
  Sender: FDA-Public Use
  Company Number: US-BAYER-2012-002902

PATIENT
  Age: 15 Year
  Sex: Female
  Weight: 77 kg

DRUGS (6)
  1. YAZ [Suspect]
  2. ANTIBIOTICS [Concomitant]
  3. YAZ [Suspect]
     Indication: PREMENSTRUAL SYNDROME
  4. YAZ [Suspect]
     Indication: ACNE
     Dosage: UNK
     Route: 048
     Dates: start: 20091123, end: 20091201
  5. MOTRIN [Concomitant]
     Dosage: UNK UNK, PRN
  6. IBUPROFEN (ADVIL) [Concomitant]
     Dosage: UNK UNK, PRN

REACTIONS (3)
  - INJURY [None]
  - PULMONARY EMBOLISM [None]
  - PAIN [None]
